FAERS Safety Report 7231833-4 (Version None)
Quarter: 2011Q1

REPORT INFORMATION
  Report Type: 
  Country: None (occurrence: None)
  Receive Date: 20110118
  Receipt Date: 20091215
  Transmission Date: 20110831
  Serious: Yes (Other)
  Sender: FDA-Public Use
  Company Number: PHEH2009US03632

PATIENT
  Sex: Female

DRUGS (1)
  1. ZOMETA [Suspect]
     Dosage: MONTHLY

REACTIONS (3)
  - TOOTH DISORDER [None]
  - METASTASES TO BONE [None]
  - BREAST CANCER METASTATIC [None]
